FAERS Safety Report 20897260 (Version 1)
Quarter: 2022Q2

REPORT INFORMATION
  Report Type: Spontaneous
  Country: US (occurrence: US)
  Receive Date: 20220531
  Receipt Date: 20220531
  Transmission Date: 20220721
  Serious: No
  Sender: FDA-Public Use
  Company Number: US-ORGANON-O2205USA002288

PATIENT
  Age: 57 Year
  Sex: Male

DRUGS (5)
  1. PREGNYL [Suspect]
     Active Substance: CHORIOGONADOTROPIN ALFA
     Indication: Endocrine disorder
     Dosage: 10000 UNIT (DOSAGE FORM) MDV60; MIX WITH 2.5 ML INCLUDED DILUENT, INJECT 0.2ML SUBCUTANEOUSLY (DISCR
     Route: 058
     Dates: start: 20220402
  2. STERILE WATER [Suspect]
     Active Substance: WATER
     Dosage: UNK
     Dates: start: 20220402
  3. ANASTROZOLE [Concomitant]
     Active Substance: ANASTROZOLE
  4. TADALAFIL [Concomitant]
     Active Substance: TADALAFIL
  5. TESTOPEL [Concomitant]
     Active Substance: TESTOSTERONE
     Dosage: TESTOPEL MIS PELLETS

REACTIONS (1)
  - Product dose omission issue [Unknown]

NARRATIVE: CASE EVENT DATE: 20220524
